FAERS Safety Report 11215608 (Version 2)
Quarter: 2015Q2

REPORT INFORMATION
  Report Type: Spontaneous
  Country: US (occurrence: US)
  Receive Date: 20150624
  Receipt Date: 20150625
  Transmission Date: 20150821
  Serious: Yes (Other)
  Sender: FDA-Public Use
  Company Number: US-PFIZER INC-2015206905

PATIENT
  Age: 58 Year
  Sex: Female

DRUGS (3)
  1. LYRICA [Suspect]
     Active Substance: PREGABALIN
     Indication: DYSTONIA
     Dosage: 150 MG, 2X/DAY
     Route: 048
     Dates: end: 201505
  2. LYRICA [Suspect]
     Active Substance: PREGABALIN
     Dosage: 150 MG, 2X/DAY
     Route: 048
     Dates: start: 201506
  3. LYRICA [Suspect]
     Active Substance: PREGABALIN
     Indication: FIBROMYALGIA
     Dosage: 75 MG, 2X/DAY
     Route: 048

REACTIONS (15)
  - Disease progression [Unknown]
  - Hyperhidrosis [Recovering/Resolving]
  - Aggression [Unknown]
  - Suicidal ideation [Recovering/Resolving]
  - Drug withdrawal syndrome [Unknown]
  - Panic attack [Recovering/Resolving]
  - Product use issue [Unknown]
  - Dystonia [Unknown]
  - Depressed mood [Unknown]
  - Anxiety [Recovering/Resolving]
  - Somnolence [Unknown]
  - Chills [Recovering/Resolving]
  - Pain [Recovering/Resolving]
  - Fibromyalgia [Unknown]
  - Tremor [Unknown]
